FAERS Safety Report 10403373 (Version 1)
Quarter: 2014Q3

REPORT INFORMATION
  Report Type: Spontaneous
  Country: IT (occurrence: IT)
  Receive Date: 20140822
  Receipt Date: 20140822
  Transmission Date: 20150326
  Serious: Yes (Other)
  Sender: FDA-Public Use
  Company Number: IT-SA-2014SA109733

PATIENT
  Sex: Female

DRUGS (14)
  1. DIDROGYL [Concomitant]
     Dosage: 1.5MG/10ML
     Route: 048
  2. ANTRA [Concomitant]
     Active Substance: OMEPRAZOLE
     Dosage: 20MG RIGID GASTRORESISTANT CAPSULES
     Route: 048
  3. LASIX [Suspect]
     Active Substance: FUROSEMIDE
     Indication: RENAL FAILURE
     Route: 048
     Dates: start: 20140706, end: 20140710
  4. CORDARONE [Concomitant]
     Active Substance: AMIODARONE HYDROCHLORIDE
     Dosage: 200MG
     Route: 048
  5. SPIRIVA [Concomitant]
     Active Substance: TIOTROPIUM BROMIDE MONOHYDRATE
     Dosage: ROUTE: INHALATION
  6. MEDROL [Concomitant]
     Active Substance: METHYLPREDNISOLONE
     Dosage: 5MG
     Route: 048
  7. PROVISACOR [Concomitant]
     Active Substance: ROSUVASTATIN
     Route: 048
  8. DERMATRANS [Concomitant]
     Dosage: PATCHES 10MG
     Route: 062
  9. NORVASC [Concomitant]
     Active Substance: AMLODIPINE BESYLATE
     Route: 048
  10. EUTIROX [Concomitant]
     Active Substance: LEVOTHYROXINE SODIUM
     Route: 048
  11. PLAQUENIL [Concomitant]
     Active Substance: HYDROXYCHLOROQUINE SULFATE
     Dosage: 200MG
     Route: 048
  12. FOLINA [Concomitant]
     Active Substance: FOLIC ACID
     Dosage: 5MG
     Route: 048
  13. METHOTREXATE [Concomitant]
     Active Substance: METHOTREXATE
     Route: 030
  14. PLAVIX [Concomitant]
     Active Substance: CLOPIDOGREL BISULFATE
     Dosage: 75 MG
     Route: 048

REACTIONS (5)
  - Loss of consciousness [Recovering/Resolving]
  - Hypotension [Recovering/Resolving]
  - Epigastric discomfort [Recovering/Resolving]
  - Syncope [Recovering/Resolving]
  - Overdose [Unknown]

NARRATIVE: CASE EVENT DATE: 20140710
